FAERS Safety Report 15860155 (Version 2)
Quarter: 2019Q1

REPORT INFORMATION
  Report Type: Report from Study
  Country: FR (occurrence: FR)
  Receive Date: 20190123
  Receipt Date: 20190213
  Transmission Date: 20190417
  Serious: Yes (Other)
  Sender: FDA-Public Use
  Company Number: FR-TAKEDA-2018TUS026361

PATIENT
  Age: 67 Year
  Sex: Male

DRUGS (4)
  1. BRIGATINIB [Suspect]
     Active Substance: BRIGATINIB
     Indication: NON-SMALL CELL LUNG CANCER
     Dosage: 90 MILLIGRAM, QD
     Route: 065
     Dates: start: 20180518
  2. BRIGATINIB [Suspect]
     Active Substance: BRIGATINIB
     Dosage: 180 MILLIGRAM, QD
     Route: 065
     Dates: end: 20190201
  3. INNOHEP [Concomitant]
     Active Substance: TINZAPARIN SODIUM
     Indication: EMBOLISM
     Dosage: 0.8 ML, QD
     Route: 065
     Dates: start: 20161111
  4. OXYCONTIN [Concomitant]
     Active Substance: OXYCODONE HYDROCHLORIDE
     Indication: METASTASES TO BONE
     Dosage: 10 MG, BID
     Route: 065
     Dates: start: 20161010

REACTIONS (8)
  - Electrocardiogram abnormal [Unknown]
  - Neoplasm progression [Unknown]
  - Creatinine renal clearance abnormal [Recovered/Resolved]
  - Dyspnoea [Unknown]
  - Platelet disorder [Unknown]
  - Neutrophil count increased [Unknown]
  - Blood potassium increased [Unknown]
  - Weight decreased [Unknown]

NARRATIVE: CASE EVENT DATE: 20180618
